FAERS Safety Report 6986318-7 (Version None)
Quarter: 2010Q3

REPORT INFORMATION
  Report Type: 
  Country: None (occurrence: None)
  Receive Date: 20100915
  Receipt Date: 20090618
  Transmission Date: 20110219
  Serious: No
  Sender: FDA-Public Use
  Company Number: US-WYE-H09857909

PATIENT
  Sex: Female
  Weight: 53.57 kg

DRUGS (6)
  1. PRISTIQ [Suspect]
     Indication: ANXIETY
     Route: 048
     Dates: start: 20090527, end: 20090612
  2. PRISTIQ [Suspect]
     Route: 048
     Dates: start: 20090613
  3. VITAMIN B6 [Concomitant]
  4. SPIRONOLACTONE [Concomitant]
  5. MULTI-VITAMINS [Concomitant]
  6. ORTHO TRI-CYCLEN [Concomitant]

REACTIONS (2)
  - DRUG INEFFECTIVE [None]
  - FATIGUE [None]
